FAERS Safety Report 4370648-1 (Version None)
Quarter: 2004Q2

REPORT INFORMATION
  Report Type: 
  Country: None (occurrence: None)
  Receive Date: 20040525
  Receipt Date: 20040511
  Transmission Date: 20050107
  Serious: Yes (Hospitalization)
  Sender: FDA-Public Use
  Company Number: NL-JNJFOC-20040502116

PATIENT
  Age: 31 Year
  Sex: Male
  Weight: 70.1 kg

DRUGS (5)
  1. RISPERIDONE [Suspect]
     Indication: SCHIZOPHRENIA
     Dosage: 27.5 MG, INTRA-MUSCULAR; 50 MG INTRA-MUSCULAR
     Route: 030
     Dates: start: 20040323, end: 20040407
  2. RISPERIDONE [Suspect]
     Indication: SCHIZOPHRENIA
     Dosage: 27.5 MG, INTRA-MUSCULAR; 50 MG INTRA-MUSCULAR
     Route: 030
     Dates: start: 20040130
  3. RISPERDAL [Concomitant]
  4. PROMETHAZINE (PROMETHAZINE) TABLETS [Concomitant]
  5. OXAZEPAM (OXAZEPAM) TABLETS [Concomitant]

REACTIONS (3)
  - AGGRESSION [None]
  - MOOD ALTERED [None]
  - PSYCHOTIC DISORDER [None]
